FAERS Safety Report 26046262 (Version 1)
Quarter: 2025Q4

REPORT INFORMATION
  Report Type: Spontaneous
  Country: US (occurrence: US)
  Receive Date: 20251114
  Receipt Date: 20251114
  Transmission Date: 20260118
  Serious: No
  Sender: BIOGEN
  Company Number: US-BIOGEN-2090583

PATIENT
  Sex: Male

DRUGS (1)
  1. VUMERITY [Suspect]
     Active Substance: DIROXIMEL FUMARATE
     Indication: Multiple sclerosis

REACTIONS (2)
  - Product dose omission issue [Unknown]
  - Multiple sclerosis pseudo relapse [Unknown]
